FAERS Safety Report 18503071 (Version 1)
Quarter: 2020Q4

REPORT INFORMATION
  Report Type: Spontaneous
  Country: ES (occurrence: ES)
  Receive Date: 20201113
  Receipt Date: 20201113
  Transmission Date: 20210114
  Serious: Yes (Other)
  Sender: FDA-Public Use
  Company Number: ES-TEVA-2020-ES-1848346

PATIENT
  Sex: Female

DRUGS (1)
  1. LEVONORGESTREL TEVA 1.5 MG [Suspect]
     Active Substance: LEVONORGESTREL
     Route: 048
     Dates: start: 20201002

REACTIONS (1)
  - Pregnancy on oral contraceptive [Unknown]
